FAERS Safety Report 12270418 (Version 1)
Quarter: 2016Q2

REPORT INFORMATION
  Report Type: Spontaneous
  Country: BR (occurrence: BR)
  Receive Date: 20160415
  Receipt Date: 20160415
  Transmission Date: 20160815
  Serious: Yes (Hospitalization, Other)
  Sender: FDA-Public Use
  Company Number: BR-ASTRAZENECA-2016SE38905

PATIENT
  Age: 79 Year
  Sex: Male
  Weight: 58 kg

DRUGS (6)
  1. METFORMIN [Concomitant]
     Active Substance: METFORMIN HYDROCHLORIDE
     Indication: TYPE 2 DIABETES MELLITUS
     Dosage: TWO TIMES A DAY
     Route: 048
     Dates: start: 2012
  2. ATENOLOL. [Suspect]
     Active Substance: ATENOLOL
     Indication: HYPERTENSION
     Dosage: TWO TIMES A DAY
     Route: 048
     Dates: start: 2012
  3. ASA [Concomitant]
     Active Substance: ASPIRIN
     Dosage: AFTER LUNCH, EVERY DAY
     Route: 048
     Dates: start: 2012
  4. NAPRIX [Concomitant]
     Active Substance: RAMIPRIL
     Indication: HYPERTENSION
     Dosage: EVERY DAY
     Route: 048
     Dates: start: 20160120
  5. GLIMEPIRIDE. [Concomitant]
     Active Substance: GLIMEPIRIDE
     Indication: TYPE 2 DIABETES MELLITUS
     Dosage: EVERY DAY
     Route: 048
     Dates: start: 2014
  6. BRILINTA [Suspect]
     Active Substance: TICAGRELOR
     Indication: ARTERIAL OCCLUSIVE DISEASE
     Dosage: TWO TIMES A DAY
     Route: 048
     Dates: start: 20160120

REACTIONS (9)
  - Pharyngitis [Not Recovered/Not Resolved]
  - Vision blurred [Recovering/Resolving]
  - Diabetes mellitus inadequate control [Recovered/Resolved]
  - Cataract [Recovered/Resolved]
  - Cough [Not Recovered/Not Resolved]
  - Dyspnoea [Not Recovered/Not Resolved]
  - Rhinorrhoea [Not Recovered/Not Resolved]
  - Arterial occlusive disease [Recovered/Resolved]
  - Device occlusion [Recovered/Resolved]

NARRATIVE: CASE EVENT DATE: 2013
